FAERS Safety Report 17336622 (Version 1)
Quarter: 2020Q1

REPORT INFORMATION
  Report Type: Spontaneous
  Country: US (occurrence: US)
  Receive Date: 20200128
  Receipt Date: 20200128
  Transmission Date: 20200409
  Serious: No
  Sender: FDA-Public Use
  Company Number: US-VERTEX PHARMACEUTICALS-2020-001312

PATIENT
  Sex: Male
  Weight: 12 kg

DRUGS (4)
  1. ORKAMBI [Suspect]
     Active Substance: IVACAFTOR\LUMACAFTOR
     Indication: CYSTIC FIBROSIS
     Dosage: 100/125MG BID
     Route: 048
  2. MOTRIN IB [Concomitant]
     Active Substance: IBUPROFEN
     Dosage: 200MG
     Route: 048
  3. SYNAGIS [Concomitant]
     Active Substance: PALIVIZUMAB
     Dosage: 15 MG/KG IM MG/KG IM
  4. TYLENOL [Concomitant]
     Active Substance: ACETAMINOPHEN
     Dosage: 325 MG TABLET

REACTIONS (1)
  - Weight decreased [Unknown]
